FAERS Safety Report 11455065 (Version 1)
Quarter: 2015Q3

REPORT INFORMATION
  Report Type: Spontaneous
  Country: US (occurrence: US)
  Receive Date: 20150903
  Receipt Date: 20150903
  Transmission Date: 20151125
  Serious: Yes (Disabling, Other)
  Sender: FDA-Public Use
  Company Number: US-GLAXOSMITHKLINE-US2015GSK125309

PATIENT
  Sex: Female

DRUGS (3)
  1. CYMBALTA [Suspect]
     Active Substance: DULOXETINE HYDROCHLORIDE
     Indication: PRODUCT USED FOR UNKNOWN INDICATION
  2. WELLBUTRIN [Suspect]
     Active Substance: BUPROPION HYDROCHLORIDE
     Indication: PRODUCT USED FOR UNKNOWN INDICATION
  3. CHANTIX [Suspect]
     Active Substance: VARENICLINE TARTRATE
     Indication: EX-TOBACCO USER

REACTIONS (16)
  - Sleep talking [Unknown]
  - Product substitution issue [Unknown]
  - Anxiety [Unknown]
  - Hyperglycaemia [Unknown]
  - Sleep disorder [Unknown]
  - Palpitations [Unknown]
  - Therapeutic response decreased [Unknown]
  - Withdrawal syndrome [Unknown]
  - Irritability [Unknown]
  - Abnormal behaviour [Unknown]
  - Depression [Unknown]
  - Stress [Unknown]
  - Dysphonia [Unknown]
  - Thyroid disorder [Unknown]
  - Disability [Unknown]
  - Therapeutic response changed [Unknown]
